FAERS Safety Report 5803524-5 (Version None)
Quarter: 2008Q3

REPORT INFORMATION
  Report Type: 
  Country: None (occurrence: None)
  Receive Date: 20080708
  Receipt Date: 20080630
  Transmission Date: 20090109
  Serious: Yes (Hospitalization)
  Sender: FDA-Public Use
  Company Number: FR-ASTRAZENECA-2008CG01008

PATIENT
  Age: 15923 Day
  Sex: Female

DRUGS (7)
  1. DIPRIVAN [Suspect]
     Indication: INDUCTION OF ANAESTHESIA
     Route: 042
     Dates: start: 20071120, end: 20071120
  2. ULTIVA [Suspect]
     Indication: INDUCTION OF ANAESTHESIA
     Dates: start: 20071120, end: 20071120
  3. TAGAMET [Suspect]
     Indication: PREMEDICATION
     Route: 048
     Dates: start: 20071120, end: 20071120
  4. ATARAX [Suspect]
     Indication: PREMEDICATION
     Dates: start: 20071120, end: 20071120
  5. XANAX [Suspect]
     Indication: PREMEDICATION
     Route: 048
     Dates: start: 20071120, end: 20071120
  6. CEFAZOLIN [Suspect]
     Route: 042
     Dates: start: 20071120, end: 20071120
  7. CELOCURIN [Suspect]
     Indication: INDUCTION OF ANAESTHESIA
     Route: 042
     Dates: start: 20071120, end: 20071120

REACTIONS (1)
  - ANAPHYLACTIC SHOCK [None]
